FAERS Safety Report 7231869 (Version 3)
Quarter: 2014Q3

REPORT INFORMATION
  Report Type: Spontaneous
  Country: US (occurrence: None)
  Receive Date: 20091208
  Receipt Date: 20140725
  Transmission Date: 20150326
  Serious: Yes (Disabling, Other)
  Sender: FDA-Public Use
  Company Number: JPI-P-009254

PATIENT
  Age: 47 Year
  Sex: Female
  Weight: 59.1 kg

DRUGS (3)
  1. PAROXETINE HYDROCHLORIDE (PAROXETINE HYDROCHLORIDE) [Concomitant]
     Active Substance: PAROXETINE HYDROCHLORIDE
  2. CLONAZEPAM. [Concomitant]
     Active Substance: CLONAZEPAM
  3. XYREM [Suspect]
     Active Substance: SODIUM OXYBATE
     Indication: CATAPLEXY
     Route: 048
     Dates: start: 20040814, end: 20040908

REACTIONS (16)
  - Sleep talking [None]
  - Condition aggravated [None]
  - Encephalitis [None]
  - Amnesia [None]
  - Somnambulism [None]
  - Poor quality sleep [None]
  - Concussion [None]
  - Somnolence [None]
  - Craniocerebral injury [None]
  - Spinal fracture [None]
  - Abnormal dreams [None]
  - Product taste abnormal [None]
  - Cataplexy [None]
  - Sleep disorder [None]
  - Fatigue [None]
  - Insomnia [None]

NARRATIVE: CASE EVENT DATE: 20071208
